FAERS Safety Report 6794767-5 (Version None)
Quarter: 2010Q2

REPORT INFORMATION
  Report Type: 
  Country: None (occurrence: None)
  Receive Date: 20100520
  Receipt Date: 20090831
  Transmission Date: 20101027
  Serious: Yes (Other)
  Sender: FDA-Public Use
  Company Number: 2009262552

PATIENT
  Age: 69 Year
  Sex: Female
  Weight: 72 kg

DRUGS (9)
  1. PROVERA [Suspect]
     Indication: HORMONE REPLACEMENT THERAPY
     Dosage: ORAL
     Route: 048
     Dates: start: 19860101, end: 19970101
  2. MEDROXYPROGESTERONE ACETATE [Suspect]
     Indication: HORMONE REPLACEMENT THERAPY
     Dosage: ORAL
     Route: 048
     Dates: start: 19860101, end: 20030101
  3. MEDROXYPROGESTERONE [Suspect]
     Indication: HORMONE REPLACEMENT THERAPY
     Dates: start: 19860101, end: 20030101
  4. PREMARIN [Suspect]
     Indication: HORMONE REPLACEMENT THERAPY
     Dates: start: 19860101, end: 19970101
  5. PREMPRO [Suspect]
     Indication: HORMONE REPLACEMENT THERAPY
     Dates: start: 19980101, end: 20030101
  6. ATENOLOL [Concomitant]
  7. ASPIRIN [Concomitant]
  8. HYDROCHLOROTHIAZIDE [Concomitant]
  9. LIPITOR [Concomitant]

REACTIONS (1)
  - BREAST CANCER FEMALE [None]
